FAERS Safety Report 6556454-8 (Version None)
Quarter: 2010Q1

REPORT INFORMATION
  Report Type: 
  Country: None (occurrence: None)
  Receive Date: 20100128
  Receipt Date: 20100121
  Transmission Date: 20100710
  Serious: Yes (Other)
  Sender: FDA-Public Use
  Company Number: CN-PFIZER INC-2010008082

PATIENT
  Age: 33 Year
  Sex: Male

DRUGS (1)
  1. LIPITOR [Suspect]
     Indication: BLOOD CHOLESTEROL INCREASED
     Dosage: 10 MG DAILY
     Route: 048
     Dates: start: 20100109

REACTIONS (6)
  - ASTHENIA [None]
  - CHROMATURIA [None]
  - PROTEIN URINE PRESENT [None]
  - URINE BILIRUBIN INCREASED [None]
  - URINE KETONE BODY PRESENT [None]
  - UROBILIN URINE PRESENT [None]
